FAERS Safety Report 4411914-0 (Version None)
Quarter: 2004Q3

REPORT INFORMATION
  Report Type: 
  Country: None (occurrence: None)
  Receive Date: 20040730
  Receipt Date: 20040204
  Transmission Date: 20050211
  Serious: No
  Sender: FDA-Public Use
  Company Number: US-GLAXOSMITHKLINE-A0496972A

PATIENT
  Age: 4 Month
  Sex: Female
  Weight: 5.9 kg

DRUGS (1)
  1. ZANTAC [Suspect]
     Indication: ILL-DEFINED DISORDER
     Dosage: .7ML THREE TIMES PER DAY
     Route: 048

REACTIONS (2)
  - DRUG INEFFECTIVE [None]
  - VOMITING [None]
